FAERS Safety Report 9981090 (Version 1)
Quarter: 2014Q1

REPORT INFORMATION
  Report Type: Spontaneous
  Country: US (occurrence: US)
  Receive Date: 20140307
  Receipt Date: 20140307
  Transmission Date: 20141002
  Serious: No
  Sender: FDA-Public Use
  Company Number: US-PFIZER INC-2014065453

PATIENT
  Age: 60 Year
  Sex: Female
  Weight: 58.05 kg

DRUGS (2)
  1. CELEBREX [Suspect]
     Indication: BRAIN NEOPLASM
     Dosage: 200 MG, 1X/DAY
     Dates: start: 2009
  2. CELEBREX [Suspect]
     Indication: CERVICAL SPINAL STENOSIS

REACTIONS (3)
  - Hypertension [Unknown]
  - Musculoskeletal stiffness [Unknown]
  - Migraine [Unknown]
